FAERS Safety Report 24364816 (Version 3)
Quarter: 2025Q4

REPORT INFORMATION
  Report Type: Spontaneous
  Country: KR (occurrence: KR)
  Receive Date: 20240926
  Receipt Date: 20251010
  Transmission Date: 20260117
  Serious: Yes (Life-Threatening, Other)
  Sender: ACCORD
  Company Number: KR-Accord-447830

PATIENT
  Age: 60 Year
  Sex: Male

DRUGS (15)
  1. CISPLATIN [Suspect]
     Active Substance: CISPLATIN
     Indication: Lung adenocarcinoma stage III
  2. PACLITAXEL [Suspect]
     Active Substance: PACLITAXEL
     Indication: Lung adenocarcinoma stage III
  3. PEMETREXED [Suspect]
     Active Substance: PEMETREXED
     Indication: Lung adenocarcinoma stage III
     Dosage: 4 CYCLES
  4. BECLOMETHASONE [Suspect]
     Active Substance: BECLOMETHASONE
     Indication: Chronic obstructive pulmonary disease
     Dosage: STEROID INHALER
     Route: 055
  5. CRIZOTINIB [Suspect]
     Active Substance: CRIZOTINIB
     Indication: Lung adenocarcinoma stage III
  6. METHYLPREDNISOLONE [Suspect]
     Active Substance: METHYLPREDNISOLONE
     Indication: Chronic obstructive pulmonary disease
     Dosage: 40 MG FOR 1 WEEK; SYSTEMIC STEROIDS
  7. PREDNISOLONE [Suspect]
     Active Substance: PREDNISOLONE
     Indication: Radiation pneumonitis
     Dosage: STARTING AT 20 MG FOR 2 WEEKS, FOLLOWED BY 10 MG FOR AN ADDITIONAL 3 WEEKS
  8. PEMETREXED [Suspect]
     Active Substance: PEMETREXED
     Indication: Metastases to liver
     Dosage: 4 CYCLES
  9. PEMETREXED [Suspect]
     Active Substance: PEMETREXED
     Indication: Metastases to adrenals
     Dosage: 4 CYCLES
  10. CRIZOTINIB [Suspect]
     Active Substance: CRIZOTINIB
     Indication: Metastases to adrenals
  11. CRIZOTINIB [Suspect]
     Active Substance: CRIZOTINIB
     Indication: Metastases to liver
  12. METHYLPREDNISOLONE [Suspect]
     Active Substance: METHYLPREDNISOLONE
     Indication: Bronchitis
     Dosage: 40 MG FOR 1 WEEK; SYSTEMIC STEROIDS
  13. PREDNISOLONE [Suspect]
     Active Substance: PREDNISOLONE
     Indication: Radiation pneumonitis
     Dosage: STARTING AT 20 MG FOR 2 WEEKS, FOLLOWED BY 10 MG FOR AN ADDITIONAL 3 WEEKS
  14. CISPLATIN [Suspect]
     Active Substance: CISPLATIN
     Indication: Metastases to adrenals
     Dosage: 4 CYCLES
  15. CISPLATIN [Suspect]
     Active Substance: CISPLATIN
     Indication: Metastases to liver
     Dosage: 4 CYCLES

REACTIONS (2)
  - Tracheobronchitis viral [Recovered/Resolved]
  - Cytomegalovirus infection [Recovered/Resolved]
